FAERS Safety Report 19732679 (Version 1)
Quarter: 2021Q3

REPORT INFORMATION
  Report Type: Spontaneous
  Country: US (occurrence: US)
  Receive Date: 20210823
  Receipt Date: 20210823
  Transmission Date: 20211014
  Serious: No
  Sender: FDA-Public Use
  Company Number: US-JNJFOC-20210823139

PATIENT

DRUGS (1)
  1. WOMENS ROGAINE [Suspect]
     Active Substance: MINOXIDIL
     Indication: PRODUCT USED FOR UNKNOWN INDICATION
     Route: 065
     Dates: start: 2021, end: 202104

REACTIONS (4)
  - Application site discolouration [Not Recovered/Not Resolved]
  - Application site pain [Not Recovered/Not Resolved]
  - Application site irritation [Unknown]
  - Application site ulcer [Not Recovered/Not Resolved]

NARRATIVE: CASE EVENT DATE: 2021
